FAERS Safety Report 5647621-6 (Version None)
Quarter: 2008Q1

REPORT INFORMATION
  Report Type: 
  Country: None (occurrence: None)
  Receive Date: 20080303
  Receipt Date: 20080220
  Transmission Date: 20080703
  Serious: Yes (Life-Threatening, Hospitalization)
  Sender: FDA-Public Use
  Company Number: DE-PFIZER INC-2008016788

PATIENT
  Age: 70 Year
  Sex: Male

DRUGS (1)
  1. SUTENT [Suspect]
     Indication: PERITONEAL SARCOMA
     Dosage: DAILY DOSE:25MG
     Route: 048

REACTIONS (1)
  - ANASTOMOTIC COMPLICATION [None]
